FAERS Safety Report 13512380 (Version 1)
Quarter: 2017Q2

REPORT INFORMATION
  Report Type: Spontaneous
  Country: CH (occurrence: GB)
  Receive Date: 20170504
  Receipt Date: 20170504
  Transmission Date: 20170830
  Serious: Yes (Other)
  Sender: FDA-Public Use
  Company Number: CH-LPDUSPRD-20170530

PATIENT
  Age: 39 Year
  Sex: Male
  Weight: 119 kg

DRUGS (1)
  1. FERINJECT [Suspect]
     Active Substance: FERRIC CARBOXYMALTOSE
     Dosage: 1000MG
     Route: 041
     Dates: start: 20170223, end: 20170223

REACTIONS (3)
  - Asthenia [Unknown]
  - Hemiplegic migraine [Unknown]
  - Paralysis [Unknown]

NARRATIVE: CASE EVENT DATE: 20170223
